FAERS Safety Report 17281951 (Version 1)
Quarter: 2020Q1

REPORT INFORMATION
  Report Type: Spontaneous
  Country: US (occurrence: US)
  Receive Date: 20191230
  Receipt Date: 20191230
  Transmission Date: 20200409
  Serious: Yes (Hospitalization)
  Sender: FDA-Public Use
  Company Number: None

PATIENT
  Age: 65 Year
  Sex: Male

DRUGS (13)
  1. TYLENOL [Concomitant]
     Active Substance: ACETAMINOPHEN
  2. VIAGRA [Concomitant]
     Active Substance: SILDENAFIL CITRATE
  3. XANAX [Concomitant]
     Active Substance: ALPRAZOLAM
  4. ALLOPURINOL. [Concomitant]
     Active Substance: ALLOPURINOL
  5. NIACIN. [Concomitant]
     Active Substance: NIACIN
  6. TRAMADOL. [Concomitant]
     Active Substance: TRAMADOL
  7. ENBREL [Suspect]
     Active Substance: ETANERCEPT
     Indication: RHEUMATOID ARTHRITIS
     Route: 058
     Dates: start: 20170725
  8. KRILL OIL [Concomitant]
     Active Substance: DIETARY SUPPLEMENT\KRILL OIL
  9. AMLODIPINE [Concomitant]
     Active Substance: AMLODIPINE BESYLATE
  10. LISINOPRIL. [Concomitant]
     Active Substance: LISINOPRIL
  11. HYDROXYCHLOROQUINE [Concomitant]
     Active Substance: HYDROXYCHLOROQUINE
  12. ASPIRIN. [Concomitant]
     Active Substance: ASPIRIN
  13. PANTOPRAZOLE [Concomitant]
     Active Substance: PANTOPRAZOLE

REACTIONS (2)
  - Therapy cessation [None]
  - Spinal operation [None]

NARRATIVE: CASE EVENT DATE: 20191228
